FAERS Safety Report 19961061 (Version 3)
Quarter: 2022Q2

REPORT INFORMATION
  Report Type: Spontaneous
  Country: US (occurrence: US)
  Receive Date: 20211016
  Receipt Date: 20220428
  Transmission Date: 20220720
  Serious: Yes (Other)
  Sender: FDA-Public Use
  Company Number: US-ALXN-A202111355

PATIENT
  Sex: Female

DRUGS (2)
  1. SOLIRIS [Suspect]
     Active Substance: ECULIZUMAB
     Indication: Myasthenia gravis
     Dosage: UNK
     Route: 042
     Dates: start: 20180301
  2. MESTINON [Concomitant]
     Active Substance: PYRIDOSTIGMINE BROMIDE
     Indication: Brachioradial pruritus
     Dosage: UNK
     Route: 065

REACTIONS (4)
  - Foot fracture [Recovering/Resolving]
  - Musculoskeletal discomfort [Unknown]
  - Suspected COVID-19 [Recovered/Resolved]
  - Hyperhidrosis [Unknown]
